FAERS Safety Report 12281913 (Version 1)
Quarter: 2016Q2

REPORT INFORMATION
  Report Type: Spontaneous
  Country: US (occurrence: None)
  Receive Date: 20160418
  Receipt Date: 20160418
  Transmission Date: 20160815
  Serious: No
  Sender: FDA-Public Use
  Company Number: None

PATIENT
  Age: 65 Year
  Sex: Male
  Weight: 70.5 kg

DRUGS (1)
  1. KETOROLAC TROMETHAMINE. [Suspect]
     Active Substance: KETOROLAC TROMETHAMINE
     Dosage: 15 MG OTHER IV
     Route: 042
     Dates: start: 20160403, end: 20160406

REACTIONS (3)
  - Haemoglobin decreased [None]
  - Gastric haemorrhage [None]
  - Haematocrit decreased [None]

NARRATIVE: CASE EVENT DATE: 20160406
